FAERS Safety Report 7008524-8 (Version None)
Quarter: 2010Q3

REPORT INFORMATION
  Report Type: 
  Country: None (occurrence: None)
  Receive Date: 20100922
  Receipt Date: 20100915
  Transmission Date: 20110219
  Serious: No
  Sender: FDA-Public Use
  Company Number: US-PFIZER INC-2010117525

PATIENT
  Sex: Female

DRUGS (2)
  1. XALATAN [Suspect]
     Dosage: UNK
  2. LATANOPROST [Suspect]
     Dosage: UNK

REACTIONS (2)
  - DEVICE INEFFECTIVE [None]
  - EYE IRRITATION [None]
